FAERS Safety Report 6979521-3 (Version None)
Quarter: 2010Q3

REPORT INFORMATION
  Report Type: 
  Country: None (occurrence: None)
  Receive Date: 20100910
  Receipt Date: 20100910
  Transmission Date: 20110219
  Serious: Yes (Hospitalization)
  Sender: FDA-Public Use
  Company Number: None

PATIENT
  Age: 54 Year
  Sex: Male
  Weight: 66 kg

DRUGS (1)
  1. GLIPIZIDE [Suspect]
     Indication: TYPE 2 DIABETES MELLITUS
     Dosage: 5 MG BID PO
     Route: 048
     Dates: start: 20100812, end: 20100903

REACTIONS (2)
  - HYPOGLYCAEMIA [None]
  - MENTAL STATUS CHANGES [None]
